FAERS Safety Report 5773640-5 (Version None)
Quarter: 2008Q2

REPORT INFORMATION
  Report Type: 
  Country: None (occurrence: None)
  Receive Date: 20080616
  Receipt Date: 20080605
  Transmission Date: 20081010
  Serious: Yes (Hospitalization, Other)
  Sender: FDA-Public Use
  Company Number: DE-JNJFOC-20080406013

PATIENT
  Sex: Female
  Weight: 76.6 kg

DRUGS (5)
  1. HALDOL DECANOAT [Suspect]
     Indication: SCHIZOAFFECTIVE DISORDER
     Route: 042
  2. BIPERIDEN HYDROCHLORIDE TAB [Concomitant]
     Indication: SCHIZOAFFECTIVE DISORDER
     Route: 048
  3. DOMINAL [Concomitant]
     Indication: SCHIZOAFFECTIVE DISORDER
     Route: 048
  4. CITALOPRAM HYDROBROMIDE [Concomitant]
     Indication: SCHIZOAFFECTIVE DISORDER
     Route: 048
  5. ZYPREXA [Concomitant]
     Indication: SCHIZOAFFECTIVE DISORDER
     Route: 048

REACTIONS (1)
  - HODGKIN'S DISEASE [None]
